FAERS Safety Report 7042624-1 (Version None)
Quarter: 2010Q4

REPORT INFORMATION
  Report Type: 
  Country: None (occurrence: None)
  Receive Date: 20101013
  Receipt Date: 20101007
  Transmission Date: 20110411
  Serious: Yes (Other)
  Sender: FDA-Public Use
  Company Number: JP-B.I. PHARMACEUTICALS,INC./RIDGEFIELD-2010-BP-10358NB

PATIENT
  Sex: Male
  Weight: 59 kg

DRUGS (4)
  1. MICARDIS [Suspect]
     Indication: HYPERTENSION
     Dosage: 40 MG
     Route: 048
     Dates: start: 20100529, end: 20100911
  2. EPADEL [Concomitant]
     Indication: DYSPNOEA
     Dosage: 1800 MG
     Route: 048
     Dates: start: 20100310, end: 20100824
  3. CINAL [Concomitant]
     Dosage: 3 G
     Route: 048
     Dates: start: 20100310, end: 20100623
  4. JUVELA N [Concomitant]
     Dosage: 300 MG
     Route: 048
     Dates: start: 20100310, end: 20100623

REACTIONS (1)
  - HYPOGLYCAEMIA [None]
